FAERS Safety Report 4689480-4 (Version None)
Quarter: 2005Q2

REPORT INFORMATION
  Report Type: 
  Country: None (occurrence: None)
  Receive Date: 20050613
  Receipt Date: 20050613
  Transmission Date: 20051028
  Serious: Yes (Other)
  Sender: FDA-Public Use
  Company Number: None

PATIENT
  Sex: Male
  Weight: 72.4 kg

DRUGS (2)
  1. TEMODAR [Suspect]
     Indication: OLIGODENDROGLIOMA
     Dosage: 75 MG/M2 DAILY 1 HOUR PRIOR TO XRT AND ON WEEKENDS
     Dates: start: 20050525
  2. RADIATION [Suspect]
     Indication: OLIGODENDROGLIOMA
     Dates: start: 20050525

REACTIONS (1)
  - PULMONARY EMBOLISM [None]
